FAERS Safety Report 20063303 (Version 4)
Quarter: 2022Q1

REPORT INFORMATION
  Report Type: Spontaneous
  Country: US (occurrence: US)
  Receive Date: 20211112
  Receipt Date: 20220317
  Transmission Date: 20220423
  Serious: Yes (Other)
  Sender: FDA-Public Use
  Company Number: US-SA-2021SA373537

PATIENT
  Age: 70 Year
  Sex: Male

DRUGS (36)
  1. CLOPIDOGREL BISULFATE [Interacting]
     Active Substance: CLOPIDOGREL BISULFATE
     Dosage: UNK
  2. DICYCLOMINE [Suspect]
     Active Substance: DICYCLOMINE HYDROCHLORIDE
     Indication: Diverticulum
     Dosage: 10 MG
     Dates: start: 20210904, end: 202109
  3. ENZALUTAMIDE [Suspect]
     Active Substance: ENZALUTAMIDE
     Indication: Prostate cancer metastatic
     Dosage: 80 MG, QD
     Route: 048
     Dates: start: 202106, end: 20211203
  4. XTANDI [Interacting]
     Active Substance: ENZALUTAMIDE
     Indication: Prostate cancer metastatic
     Dosage: 160 MG, QD
     Route: 048
     Dates: start: 20200211
  5. XTANDI [Interacting]
     Active Substance: ENZALUTAMIDE
     Dosage: 80 MG, QD
     Route: 048
     Dates: start: 20200727, end: 202106
  6. LOSARTAN POTASSIUM [Concomitant]
     Active Substance: LOSARTAN POTASSIUM
     Dosage: 25 MG
  7. ZOLPIDEM TARTRATE [Concomitant]
     Active Substance: ZOLPIDEM TARTRATE
     Dosage: 10 MG
  8. PREDNISONE [Concomitant]
     Active Substance: PREDNISONE
     Dosage: 15 MG
  9. GLIMEPIRIDE [Concomitant]
     Active Substance: GLIMEPIRIDE
     Dosage: 1 MG
  10. CALCIUM [Concomitant]
     Active Substance: CALCIUM
     Dosage: UNK
  11. VITAMIN D3 [Concomitant]
     Active Substance: CHOLECALCIFEROL
     Dosage: 250 UG
  12. ASCORBIC ACID [Concomitant]
     Active Substance: ASCORBIC ACID
  13. RETINOL [Concomitant]
     Active Substance: RETINOL
     Dosage: UNK
  14. TOCOPHEROL [Concomitant]
     Active Substance: TOCOPHEROL
     Dosage: UNK
  15. ASPIRIN [Concomitant]
     Active Substance: ASPIRIN
     Dosage: 81 MG
  16. DENOSUMAB [Concomitant]
     Active Substance: DENOSUMAB
     Dosage: UNK
     Dates: start: 20200316
  17. IRON [Concomitant]
     Active Substance: IRON
  18. BIOTIN [Concomitant]
     Active Substance: BIOTIN
  19. CALCIUM CARBONATE [Concomitant]
     Active Substance: CALCIUM CARBONATE
  20. CHROMIC CHLORIDE [Concomitant]
     Active Substance: CHROMIC CHLORIDE
  21. CUPRIC OXIDE [Concomitant]
     Active Substance: CUPRIC OXIDE
  22. CYANOCOBALAMIN [Concomitant]
     Active Substance: CYANOCOBALAMIN
  23. ERGOCALCIFEROL [Concomitant]
     Active Substance: ERGOCALCIFEROL
  24. FOLIC ACID [Concomitant]
     Active Substance: FOLIC ACID
  25. LYCOPENE [Concomitant]
     Active Substance: LYCOPENE
  26. MAGNESIUM OXIDE [Concomitant]
     Active Substance: MAGNESIUM OXIDE
  27. MANGANESE SULFATE [Concomitant]
     Active Substance: MANGANESE SULFATE
  28. NICOTINAMIDE [Concomitant]
     Active Substance: NIACINAMIDE
  29. PANTOTHENIC ACID [Concomitant]
     Active Substance: PANTOTHENIC ACID
  30. PHYTONADIONE [Concomitant]
     Active Substance: PHYTONADIONE
  31. POTASSIUM CHLORIDE [Concomitant]
     Active Substance: POTASSIUM CHLORIDE
  32. PYRIDOXINE HYDROCHLORIDE [Concomitant]
     Active Substance: PYRIDOXINE HYDROCHLORIDE
  33. RIBOFLAVIN [Concomitant]
     Active Substance: RIBOFLAVIN
  34. THIAMINE MONONITRATE [Concomitant]
     Active Substance: THIAMINE MONONITRATE
  35. VITAMIN E [Concomitant]
     Active Substance: .ALPHA.-TOCOPHEROL
  36. ZINC OXIDE [Concomitant]
     Active Substance: ZINC OXIDE
     Dosage: UNK

REACTIONS (5)
  - Myocardial infarction [Recovering/Resolving]
  - Diverticulum [Unknown]
  - Condition aggravated [Unknown]
  - Feeling abnormal [Recovering/Resolving]
  - Drug interaction [Unknown]

NARRATIVE: CASE EVENT DATE: 20211116
